FAERS Safety Report 5475994-6 (Version None)
Quarter: 2007Q4

REPORT INFORMATION
  Report Type: 
  Country: None (occurrence: None)
  Receive Date: 20071003
  Receipt Date: 20070921
  Transmission Date: 20080405
  Serious: Yes (Other)
  Sender: FDA-Public Use
  Company Number: JP-ROCHE-517653

PATIENT
  Age: 84 Year
  Sex: Male

DRUGS (1)
  1. ROCEPHIN [Suspect]
     Indication: DRUG USE FOR UNKNOWN INDICATION
     Route: 041
     Dates: start: 20070907, end: 20070912

REACTIONS (1)
  - PANCREATITIS [None]
